FAERS Safety Report 4632090-5 (Version None)
Quarter: 2005Q2

REPORT INFORMATION
  Report Type: 
  Country: None (occurrence: None)
  Receive Date: 20050411
  Receipt Date: 20050201
  Transmission Date: 20051028
  Serious: Yes (Other)
  Sender: FDA-Public Use
  Company Number: US-AMGEN-US119618

PATIENT
  Sex: Female

DRUGS (7)
  1. ENBREL [Suspect]
     Indication: PSORIATIC ARTHROPATHY
     Route: 058
     Dates: start: 20040819, end: 20041215
  2. LOTREL [Concomitant]
  3. LORTAB [Concomitant]
  4. LORAZEPAM [Concomitant]
  5. DOVONEX [Concomitant]
  6. DESONIDE [Concomitant]
  7. ELOCON [Concomitant]

REACTIONS (9)
  - EYE PAIN [None]
  - HEADACHE [None]
  - INFLAMMATION [None]
  - INJECTION SITE REACTION [None]
  - LIVER FUNCTION TEST ABNORMAL [None]
  - NAUSEA [None]
  - OPTIC NERVE DISORDER [None]
  - PANCREATIC DISORDER [None]
  - VOMITING [None]
